FAERS Safety Report 25565861 (Version 1)
Quarter: 2025Q3

REPORT INFORMATION
  Report Type: Spontaneous
  Country: US (occurrence: None)
  Receive Date: 20250715
  Receipt Date: 20250715
  Transmission Date: 20251021
  Serious: Yes (Other)
  Sender: FDA-CTU
  Company Number: None

PATIENT
  Age: 83 Year
  Sex: Female
  Weight: 77.11 kg

DRUGS (6)
  1. BONIVA [Suspect]
     Active Substance: IBANDRONATE SODIUM
     Indication: Osteoporosis
     Dosage: FREQUENCY : MONTHLY;?
     Route: 048
     Dates: start: 20241217, end: 20250417
  2. HYDROCHLOROTHIAZIDE\VALSARTAN [Concomitant]
     Active Substance: HYDROCHLOROTHIAZIDE\VALSARTAN
  3. DEVICE [Concomitant]
     Active Substance: DEVICE
  4. OMEPRAZOLE [Concomitant]
     Active Substance: OMEPRAZOLE
  5. Calcium-Vit D3 [Concomitant]
  6. VITAMINS [Concomitant]
     Active Substance: VITAMINS

REACTIONS (4)
  - Arthralgia [None]
  - Myalgia [None]
  - Bone pain [None]
  - Therapy cessation [None]

NARRATIVE: CASE EVENT DATE: 20250315
